FAERS Safety Report 12538087 (Version 3)
Quarter: 2016Q3

REPORT INFORMATION
  Report Type: Report from Study
  Country: US (occurrence: US)
  Receive Date: 20160707
  Receipt Date: 20160919
  Transmission Date: 20161109
  Serious: Yes (Other)
  Sender: FDA-Public Use
  Company Number: US-TEVA-671937USA

PATIENT
  Sex: Female
  Weight: 74.91 kg

DRUGS (1)
  1. CINQAIR [Suspect]
     Active Substance: RESLIZUMAB
     Route: 065

REACTIONS (8)
  - Hypersensitivity [Unknown]
  - Peripheral swelling [Unknown]
  - Mass [Unknown]
  - Lip swelling [Unknown]
  - Swelling [Unknown]
  - Exposure via body fluid [Unknown]
  - Local swelling [Unknown]
  - Eye swelling [Unknown]
